FAERS Safety Report 7679889-9 (Version None)
Quarter: 2011Q3

REPORT INFORMATION
  Report Type: 
  Country: None (occurrence: None)
  Receive Date: 20110812
  Receipt Date: 20110809
  Transmission Date: 20111222
  Serious: Yes (Other)
  Sender: FDA-Public Use
  Company Number: US-PFIZER INC-2011183656

PATIENT
  Sex: Female
  Weight: 99.8 kg

DRUGS (5)
  1. GEODON [Suspect]
     Dosage: 60 MG, DAILY
     Dates: start: 20110101, end: 20110101
  2. GEODON [Suspect]
     Dosage: 80 MG, DAILY
     Dates: start: 20110101
  3. LEXAPRO [Concomitant]
     Indication: DEPRESSION
     Dosage: 30 MG, DAILY
  4. GEODON [Suspect]
     Indication: BIPOLAR DISORDER
     Dosage: 40 MG, DAILY
     Dates: start: 20110701, end: 20110101
  5. BUSPAR [Concomitant]
     Indication: ANXIETY
     Dosage: UNK

REACTIONS (6)
  - BLOOD GLUCOSE DECREASED [None]
  - SPEECH DISORDER [None]
  - TREMOR [None]
  - NAUSEA [None]
  - FEELING DRUNK [None]
  - INSOMNIA [None]
